FAERS Safety Report 8492257-5 (Version None)
Quarter: 2012Q3

REPORT INFORMATION
  Report Type: 
  Country: None (occurrence: None)
  Receive Date: 20120706
  Receipt Date: 20120702
  Transmission Date: 20120928
  Serious: Yes (Death)
  Sender: FDA-Public Use
  Company Number: DE-ROCHE-1079596

PATIENT
  Age: 20 Year
  Sex: Male

DRUGS (9)
  1. SINGULAIR [Concomitant]
     Route: 065
  2. IBUPROFEN [Concomitant]
  3. ENALAPRIL MALEATE [Concomitant]
     Route: 065
  4. XUSAL [Concomitant]
  5. XOLAIR [Suspect]
     Indication: ASTHMA
     Route: 058
     Dates: start: 20100601, end: 20120530
  6. FLUTICASONE PROPIONATE/SALMETEROL [Concomitant]
  7. ALBUTEROL SULFATE AUTOHALER [Concomitant]
     Route: 065
  8. FLUTICASONE PROPIONATE [Concomitant]
     Route: 065
  9. FORMOTEROL FUMARATE [Concomitant]
     Route: 065

REACTIONS (2)
  - RIGHT VENTRICULAR FAILURE [None]
  - STATUS ASTHMATICUS [None]
